FAERS Safety Report 18618883 (Version 2)
Quarter: 2020Q4

REPORT INFORMATION
  Report Type: Report from Study
  Country: CA (occurrence: CA)
  Receive Date: 20201215
  Receipt Date: 20201217
  Transmission Date: 20210114
  Serious: Yes (Other)
  Sender: FDA-Public Use
  Company Number: CA-JNJFOC-20201223715

PATIENT
  Age: 16 Year
  Sex: Female
  Weight: 34 kg

DRUGS (2)
  1. REMICADE [Suspect]
     Active Substance: INFLIXIMAB
     Dosage: ON 10-DEC-2020, THE PATIENT RECEIVED 2ND INFLIXIMAB INFUSION AT DOSE 263.25 MG (ALSO REPORTED AS 7.5
     Route: 042
     Dates: start: 20201210
  2. REMICADE [Suspect]
     Active Substance: INFLIXIMAB
     Indication: COLITIS ULCERATIVE
     Route: 042
     Dates: start: 20201204

REACTIONS (4)
  - Diarrhoea [Unknown]
  - Off label use [Unknown]
  - Haematochezia [Unknown]
  - Abdominal pain [Unknown]

NARRATIVE: CASE EVENT DATE: 2020
